FAERS Safety Report 18464285 (Version 1)
Quarter: 2020Q4

REPORT INFORMATION
  Report Type: Spontaneous
  Country: JP (occurrence: JP)
  Receive Date: 20201104
  Receipt Date: 20201104
  Transmission Date: 20210114
  Serious: Yes (Other)
  Sender: FDA-Public Use
  Company Number: JP-JAZZ-2020-JP-013854

PATIENT
  Age: 71 Year
  Sex: Female

DRUGS (1)
  1. DEFITELIO [Suspect]
     Active Substance: DEFIBROTIDE SODIUM
     Indication: VENOOCCLUSIVE LIVER DISEASE
     Dosage: UNKNOWN DOSE DAILY
     Route: 042
     Dates: start: 20200930, end: 20201012

REACTIONS (1)
  - Acute graft versus host disease [Unknown]

NARRATIVE: CASE EVENT DATE: 20201011
